FAERS Safety Report 20094997 (Version 1)
Quarter: 2021Q4

REPORT INFORMATION
  Report Type: Spontaneous
  Country: US (occurrence: US)
  Receive Date: 20211122
  Receipt Date: 20211122
  Transmission Date: 20220303
  Serious: Yes (Hospitalization)
  Sender: FDA-Public Use
  Company Number: US-drreddys-LIT/USA/21/0143850

PATIENT
  Age: 31 Year
  Sex: Female

DRUGS (3)
  1. OXYTOCIN [Suspect]
     Active Substance: OXYTOCIN
     Indication: Labour augmentation
     Dosage: 2 MU/MINUTE
     Route: 042
  2. OXYTOCIN [Suspect]
     Active Substance: OXYTOCIN
     Indication: Postpartum haemorrhage
     Dosage: 10U BOLUS OVER 30 MINUTES
     Route: 040
  3. OXYTOCIN [Suspect]
     Active Substance: OXYTOCIN
     Dosage: 8 MU/MINUTE
     Route: 042

REACTIONS (1)
  - Oliguria [Recovered/Resolved]
